FAERS Safety Report 7278955-X (Version None)
Quarter: 2011Q1

REPORT INFORMATION
  Report Type: 
  Country: None (occurrence: None)
  Receive Date: 20110207
  Receipt Date: 20110125
  Transmission Date: 20110831
  Serious: Yes (Hospitalization, Other)
  Sender: FDA-Public Use
  Company Number: PHHY2011DE06097

PATIENT
  Sex: Female

DRUGS (5)
  1. SANDOSTATIN LAR [Concomitant]
     Indication: NEUROENDOCRINE TUMOUR
     Dosage: 20 MG, EVERY 28 DAYS
     Route: 030
  2. METFORMIN HCL [Concomitant]
     Indication: DIABETES MELLITUS
     Dosage: UNK
     Route: 048
  3. BISOPROLOL [Concomitant]
     Indication: HYPERTENSION
     Dosage: UNK
     Route: 048
  4. AFINITOR [Suspect]
     Indication: NEUROENDOCRINE TUMOUR
     Dosage: 1 DF, QD
     Route: 048
     Dates: end: 20110123
  5. AFINITOR [Suspect]
     Dosage: 1 DF, QD
     Dates: start: 20110124

REACTIONS (3)
  - PANCREATITIS [None]
  - ASCITES [None]
  - PLEURAL EFFUSION [None]
